FAERS Safety Report 5913532-1 (Version None)
Quarter: 2008Q4

REPORT INFORMATION
  Report Type: 
  Country: None (occurrence: None)
  Receive Date: 20081009
  Receipt Date: 20080930
  Transmission Date: 20090506
  Serious: Yes (Hospitalization)
  Sender: FDA-Public Use
  Company Number: US-JNJFOC-20081000822

PATIENT
  Sex: Female
  Weight: 85.73 kg

DRUGS (3)
  1. ORTHO EVRA [Suspect]
     Indication: MENSTRUAL DISORDER
     Route: 062
  2. ORTHO EVRA [Suspect]
     Indication: AMENORRHOEA
     Route: 062
  3. LEVAQUIN [Concomitant]
     Indication: PNEUMONIA

REACTIONS (4)
  - OFF LABEL USE [None]
  - PLEURAL EFFUSION [None]
  - PNEUMONIA [None]
  - PULMONARY EMBOLISM [None]
